FAERS Safety Report 7939381-0 (Version None)
Quarter: 2011Q4

REPORT INFORMATION
  Report Type: 
  Country: None (occurrence: None)
  Receive Date: 20111125
  Receipt Date: 20111121
  Transmission Date: 20120403
  Serious: Yes (Hospitalization, Other)
  Sender: FDA-Public Use
  Company Number: DE-ROCHE-1010701

PATIENT
  Sex: Female

DRUGS (7)
  1. BUDESONIDE [Concomitant]
     Route: 065
  2. BONIVA [Suspect]
     Indication: OSTEOPOROSIS
     Route: 042
     Dates: start: 20111102, end: 20111102
  3. CALCIGEN [Concomitant]
  4. SPIRIVA [Concomitant]
  5. OLMESARTAN MEDOXOMIL [Concomitant]
  6. MARCUMAR [Concomitant]
  7. FORMOTEROL FUMARATE [Concomitant]
     Route: 065

REACTIONS (2)
  - BONE PAIN [None]
  - CEREBROVASCULAR ACCIDENT [None]
